FAERS Safety Report 24935874 (Version 1)
Quarter: 2025Q1

REPORT INFORMATION
  Report Type: Report from Study
  Country: US (occurrence: US)
  Receive Date: 20250206
  Receipt Date: 20250206
  Transmission Date: 20250409
  Serious: Yes (Congenital Anomaly)
  Sender: ROCHE
  Company Number: US-ROCHE-10000196429

PATIENT

DRUGS (1)
  1. OSELTAMIVIR [Suspect]
     Active Substance: OSELTAMIVIR
     Indication: Product used for unknown indication
     Route: 064

REACTIONS (4)
  - Foetal exposure during pregnancy [Unknown]
  - Atrial septal defect [Unknown]
  - Aortic valve incompetence [Unknown]
  - Bicuspid aortic valve [Unknown]
